FAERS Safety Report 6440080-5 (Version None)
Quarter: 2009Q4

REPORT INFORMATION
  Report Type: 
  Country: None (occurrence: None)
  Receive Date: 20091113
  Receipt Date: 20081106
  Transmission Date: 20100525
  Serious: No
  Sender: FDA-Public Use
  Company Number: A0647638A

PATIENT
  Age: 81 Year
  Sex: Male

DRUGS (7)
  1. COREG [Suspect]
     Dosage: 12.5MG TWICE PER DAY
     Route: 048
     Dates: start: 20061228
  2. CARVEDILOL [Suspect]
     Route: 048
     Dates: start: 20071201
  3. LIPITOR [Concomitant]
  4. COZAAR [Concomitant]
  5. GABAPENTIN [Concomitant]
  6. BACLOFEN [Concomitant]
  7. ASPIRIN [Concomitant]

REACTIONS (3)
  - FATIGUE [None]
  - HYPERSOMNIA [None]
  - SLEEP DISORDER [None]
